FAERS Safety Report 25378153 (Version 1)
Quarter: 2025Q2

REPORT INFORMATION
  Report Type: Report from Study
  Country: JP (occurrence: JP)
  Receive Date: 20250530
  Receipt Date: 20250530
  Transmission Date: 20250717
  Serious: Yes (Death, Life-Threatening, Other)
  Sender: ROCHE
  Company Number: JP-ROCHE-10000291235

PATIENT

DRUGS (4)
  1. BEVACIZUMAB [Suspect]
     Active Substance: BEVACIZUMAB
     Indication: Hepatocellular carcinoma
     Route: 065
  2. ATEZOLIZUMAB [Suspect]
     Active Substance: ATEZOLIZUMAB
     Indication: Hepatocellular carcinoma
     Route: 065
  3. TREMELIMUMAB [Suspect]
     Active Substance: TREMELIMUMAB
     Indication: Hepatocellular carcinoma
     Route: 065
  4. DURVALUMAB [Suspect]
     Active Substance: DURVALUMAB
     Indication: Hepatocellular carcinoma
     Route: 065

REACTIONS (49)
  - Fatigue [Unknown]
  - Diarrhoea [Unknown]
  - Decreased appetite [Unknown]
  - Nausea [Unknown]
  - Arthralgia [Unknown]
  - Myalgia [Unknown]
  - Adrenal insufficiency [Unknown]
  - Hypothyroidism [Unknown]
  - Dry mouth [Unknown]
  - Blood creatinine increased [Unknown]
  - Alanine aminotransferase increased [Fatal]
  - Aspartate aminotransferase increased [Fatal]
  - Blood alkaline phosphatase increased [Unknown]
  - Gamma-glutamyltransferase increased [Unknown]
  - Taste disorder [Unknown]
  - Hyponatraemia [Unknown]
  - Hyperkalaemia [Unknown]
  - Hypomagnesaemia [Unknown]
  - Colitis [Unknown]
  - Blood creatine phosphokinase increased [Unknown]
  - Constipation [Unknown]
  - Palmar-plantar erythrodysaesthesia syndrome [Unknown]
  - Stomatitis [Unknown]
  - Dermatitis acneiform [Unknown]
  - Erythema multiforme [Unknown]
  - Purpura [Unknown]
  - Pruritus [Unknown]
  - Eczema [Unknown]
  - Nail discolouration [Unknown]
  - Blood bilirubin increased [Unknown]
  - Pneumonia [Unknown]
  - Lymphopenia [Unknown]
  - Brain natriuretic peptide increased [Unknown]
  - Blood glucose increased [Unknown]
  - Blood albumin decreased [Unknown]
  - Haemoglobin decreased [Unknown]
  - Eosinophilia [Unknown]
  - Thrombocytopenia [Unknown]
  - Pleural effusion [Unknown]
  - Ascites [Unknown]
  - Oedema peripheral [Unknown]
  - Cough [Unknown]
  - Pyrexia [Unknown]
  - Protein urine present [Unknown]
  - Amylase increased [Unknown]
  - Blood pressure increased [Unknown]
  - Vertigo [Unknown]
  - Hepatic haemorrhage [Unknown]
  - Activated partial thromboplastin time prolonged [Unknown]
